FAERS Safety Report 6429618-1 (Version None)
Quarter: 2009Q4

REPORT INFORMATION
  Report Type: 
  Country: None (occurrence: None)
  Receive Date: 20091103
  Receipt Date: 20091019
  Transmission Date: 20100525
  Serious: Yes (Death)
  Sender: FDA-Public Use
  Company Number: 02100-JPN-06-0035

PATIENT
  Age: 67 Year
  Sex: Male
  Weight: 67.5 kg

DRUGS (9)
  1. PLETAL [Suspect]
     Indication: CEREBRAL INFARCTION
     Dosage: 100 MG, BID , ORAL
     Route: 048
     Dates: start: 20041110
  2. ENALAPRIL MALEATE [Concomitant]
  3. NARCARICIN (BENZBROMARONE) TABLET [Concomitant]
  4. CONIEL (BENIDIPINE HYDROCHLORIDE) TABLET [Concomitant]
  5. ISODINE (POVIDONE-IODINE) [Concomitant]
  6. ACHROMYCIN (TETRACYCLINE HYDROCHLORIDE) [Concomitant]
  7. RICAMYCIN (ROKITAMYCIN) TABLET [Concomitant]
  8. CEFDINIR [Concomitant]
  9. BIOFERMIN R (STREPTOCOCCUS FAECALIS) [Concomitant]

REACTIONS (1)
  - SUDDEN CARDIAC DEATH [None]
